FAERS Safety Report 23232613 (Version 1)
Quarter: 2023Q4

REPORT INFORMATION
  Report Type: Spontaneous
  Country: DK (occurrence: DK)
  Receive Date: 20231128
  Receipt Date: 20231128
  Transmission Date: 20240110
  Serious: Yes (Hospitalization)
  Sender: FDA-Public Use
  Company Number: None

PATIENT
  Age: 93 Year
  Sex: Female
  Weight: 47 kg

DRUGS (1)
  1. BOTOX [Suspect]
     Active Substance: ONABOTULINUMTOXINA
     Indication: Spasmodic dysphonia
     Dosage: TIME INTERVAL: AS NECESSARY: DOSAGE: 0-4 ML AS NECESSARY EVERY 3RD-5TH MONTH,?STRENGTH: UNKNOWN?A...
     Route: 065
     Dates: start: 20231107, end: 20231107

REACTIONS (4)
  - Pneumonia aspiration [Not Recovered/Not Resolved]
  - Pyrexia [Unknown]
  - Dyspnoea [Unknown]
  - Dysphagia [Not Recovered/Not Resolved]

NARRATIVE: CASE EVENT DATE: 20231112
